FAERS Safety Report 25198969 (Version 1)
Quarter: 2025Q2

REPORT INFORMATION
  Report Type: Spontaneous
  Country: US (occurrence: None)
  Receive Date: 20250415
  Receipt Date: 20250415
  Transmission Date: 20250717
  Serious: Yes (Hospitalization)
  Sender: FDA-CTU
  Company Number: None

PATIENT
  Age: 20 Year
  Sex: Male
  Weight: 88 kg

DRUGS (4)
  1. BLEOMYCIN [Suspect]
     Active Substance: BLEOMYCIN SULFATE
     Dates: end: 20241203
  2. DACARBAZINE [Concomitant]
     Active Substance: DACARBAZINE
     Dates: end: 20250408
  3. DOXORUBICIN HYDROCHLORIDE [Suspect]
     Active Substance: DOXORUBICIN HYDROCHLORIDE
     Dates: end: 20250408
  4. VINBLASTINE SULFATE [Suspect]
     Active Substance: VINBLASTINE SULFATE
     Dates: end: 20250408

REACTIONS (5)
  - Infusion related reaction [None]
  - Nausea [None]
  - Vomiting [None]
  - Fluid intake reduced [None]
  - Hypophagia [None]

NARRATIVE: CASE EVENT DATE: 20250411
